FAERS Safety Report 22106266 (Version 7)
Quarter: 2024Q3

REPORT INFORMATION
  Report Type: Spontaneous
  Country: NL (occurrence: NL)
  Receive Date: 20230317
  Receipt Date: 20240924
  Transmission Date: 20241017
  Serious: Yes (Death, Life-Threatening, Hospitalization, Other)
  Sender: CELLTRION
  Company Number: NL-CELLTRION INC.-2023NL002054

PATIENT

DRUGS (7)
  1. RITUXIMAB [Suspect]
     Active Substance: RITUXIMAB
     Indication: Diffuse large B-cell lymphoma
     Dosage: UNK
     Dates: start: 20220617, end: 20220915
  2. RITUXIMAB [Suspect]
     Active Substance: RITUXIMAB
     Dosage: UNK
     Dates: start: 20221017, end: 20221107
  3. RITUXIMAB [Suspect]
     Active Substance: RITUXIMAB
     Dosage: PATIENT RECEIVED CYCLE 1 DAY 1 (C1D1); 1Q3W; ADDITIONAL INFORMATION ON DRUG (FREE TEXT): DOSE NOT CH
     Route: 042
     Dates: start: 20221129, end: 20221129
  4. BENDAMUSTINE [Suspect]
     Active Substance: BENDAMUSTINE
     Indication: Diffuse large B-cell lymphoma
     Dosage: PATIENT RECEIVED CYCLE 1 DAY 2 (C1D2),LATEST DOSE ADMINISTERED ON 30/NOV/2022.
     Route: 042
     Dates: start: 20221129, end: 20221130
  5. BENDAMUSTINE [Suspect]
     Active Substance: BENDAMUSTINE
     Indication: Product used for unknown indication
     Dosage: 90 MG/M2 QD; DOSE NOT CHANGED FOR COVID INFECTION AND DRUG INTERRUPTED FOR NEUTROPENIA
     Dates: start: 20221129, end: 20221130
  6. DEXAMETHASONE [Concomitant]
     Active Substance: DEXAMETHASONE
     Dosage: 3 MG
     Route: 048
     Dates: start: 20221201, end: 20221202
  7. PANTOPRAZOLE [Concomitant]
     Active Substance: PANTOPRAZOLE
     Dosage: UNK
     Dates: start: 20220824

REACTIONS (3)
  - Disease progression [Fatal]
  - Neutropenia [Not Recovered/Not Resolved]
  - COVID-19 [Recovered/Resolved]

NARRATIVE: CASE EVENT DATE: 20221210
